FAERS Safety Report 6165565 (Version 12)
Quarter: 2013Q3

REPORT INFORMATION
  Report Type: Spontaneous
  Country: US (occurrence: US)
  Receive Date: 20061110
  Receipt Date: 20130813
  Transmission Date: 20140515
  Serious: Yes (Other)
  Sender: FDA-Public Use
  Company Number: PHEH2006US13652

PATIENT
  Age: 74 Year
  Sex: Female
  Weight: 66.21 kg

DRUGS (21)
  1. AREDIA [Suspect]
     Dates: start: 20031113, end: 20040108
  2. ZOMETA [Suspect]
     Indication: METASTASES TO BONE
     Dosage: 4 MG
     Route: 042
     Dates: start: 20040205
  3. CHEMOTHERAPEUTICS NOS [Concomitant]
  4. CLEOCIN [Concomitant]
     Dosage: 300 MG, Q6H
     Route: 048
  5. FEMARA [Concomitant]
  6. MILK OF MAGNESIA [Concomitant]
  7. MULTIVITAMINS [Concomitant]
  8. CELEBREX [Concomitant]
  9. PRINIVIL [Concomitant]
  10. DETROL [Concomitant]
  11. CALCIUM [Concomitant]
  12. GERITOL                                 /USA/ [Concomitant]
  13. NORTRIPTYLINE [Concomitant]
  14. ACTONEL [Concomitant]
  15. NEURONTIN [Concomitant]
  16. AMOXICILLIN [Concomitant]
  17. CLINDAMYCIN [Concomitant]
  18. CIPROFLOXACIN [Concomitant]
  19. NAPROXEN [Concomitant]
  20. GABAPENTIN [Concomitant]
  21. LUMIGAN [Concomitant]

REACTIONS (50)
  - Spinal column stenosis [Unknown]
  - Macular degeneration [Unknown]
  - Osteoarthritis [Unknown]
  - Mastoiditis [Unknown]
  - Osteonecrosis of jaw [Not Recovered/Not Resolved]
  - Impaired healing [Not Recovered/Not Resolved]
  - Stomatitis necrotising [Not Recovered/Not Resolved]
  - Wound [Not Recovered/Not Resolved]
  - Breath odour [Unknown]
  - Emotional distress [Unknown]
  - Bone pain [Not Recovered/Not Resolved]
  - Oral pain [Not Recovered/Not Resolved]
  - Facial pain [Not Recovered/Not Resolved]
  - Pain [Not Recovered/Not Resolved]
  - Gingivitis [Not Recovered/Not Resolved]
  - Bone disorder [Unknown]
  - Hypophagia [Unknown]
  - Deformity [Unknown]
  - Anxiety [Unknown]
  - General physical health deterioration [Unknown]
  - Decreased interest [Unknown]
  - Osteomyelitis [Unknown]
  - Primary sequestrum [Unknown]
  - Fistula [Unknown]
  - Gingival bleeding [Unknown]
  - Abscess jaw [Unknown]
  - Poor personal hygiene [Unknown]
  - Peripheral vascular disorder [Unknown]
  - Anaemia [Unknown]
  - Dizziness [Unknown]
  - Cellulitis [Unknown]
  - Local swelling [Recovering/Resolving]
  - Mass [Unknown]
  - Tinea pedis [Unknown]
  - Body tinea [Unknown]
  - Onychomycosis [Recovering/Resolving]
  - Stasis dermatitis [Recovering/Resolving]
  - Panniculitis lobular [Unknown]
  - Microangiopathy [Unknown]
  - Cataract [Unknown]
  - Foot deformity [Unknown]
  - Back pain [Recovered/Resolved]
  - Constipation [Unknown]
  - Muscular weakness [Unknown]
  - Urinary tract infection [Unknown]
  - Gastritis [Unknown]
  - Incontinence [Unknown]
  - Abdominal pain [Unknown]
  - Gastrooesophageal reflux disease [Unknown]
  - Influenza [Unknown]
